FAERS Safety Report 5143273-2 (Version None)
Quarter: 2006Q4

REPORT INFORMATION
  Report Type: 
  Country: None (occurrence: None)
  Receive Date: 20061030
  Receipt Date: 20061016
  Transmission Date: 20070319
  Serious: Yes (Other)
  Sender: FDA-Public Use
  Company Number: 2006129613

PATIENT
  Age: 69 Year
  Sex: Female
  Weight: 102.0593 kg

DRUGS (3)
  1. CELEBREX [Suspect]
     Dates: start: 20000101, end: 20060601
  2. LIPITOR [Suspect]
     Indication: BLOOD CHOLESTEROL INCREASED
     Dosage: 10 MG
     Dates: start: 20051205, end: 20060901
  3. AVAPRO [Suspect]
     Indication: HYPERTENSION

REACTIONS (12)
  - ACTIVITIES OF DAILY LIVING IMPAIRED [None]
  - ASTHENIA [None]
  - BEDRIDDEN [None]
  - BLOOD CHOLESTEROL INCREASED [None]
  - DRUG INTERACTION [None]
  - DYSKINESIA [None]
  - FATIGUE [None]
  - FEAR [None]
  - HYPERTENSION [None]
  - PAIN [None]
  - RENAL DISORDER [None]
  - TREMOR [None]
